FAERS Safety Report 10211709 (Version 3)
Quarter: 2014Q2

REPORT INFORMATION
  Report Type: Spontaneous
  Country: DE (occurrence: JP)
  Receive Date: 20140602
  Receipt Date: 20140627
  Transmission Date: 20141212
  Serious: Yes (Hospitalization)
  Sender: FDA-Public Use
  Company Number: JP-FRI-1000067819

PATIENT
  Age: 44 Year
  Sex: Male

DRUGS (7)
  1. MEMANTINE [Suspect]
     Indication: DEMENTIA ALZHEIMER^S TYPE
     Dosage: 20 MG
     Route: 048
     Dates: start: 201403, end: 20140411
  2. METHYCOBAL [Concomitant]
  3. FOLIAMIN [Concomitant]
  4. DAIOKANZOTO [Concomitant]
  5. URSO [Concomitant]
  6. TAURINE [Concomitant]
  7. NERIPROCT [Concomitant]

REACTIONS (1)
  - Blood creatine phosphokinase increased [Recovered/Resolved]
